FAERS Safety Report 6310830-7 (Version None)
Quarter: 2009Q3

REPORT INFORMATION
  Report Type: 
  Country: None (occurrence: None)
  Receive Date: 20090812
  Receipt Date: 20090727
  Transmission Date: 20100115
  Serious: Yes (Hospitalization, Other)
  Sender: FDA-Public Use
  Company Number: 2009US-26026

PATIENT
  Age: 77 Year
  Sex: Female

DRUGS (14)
  1. VERAPAMIL [Suspect]
     Indication: ATRIAL FIBRILLATION
     Dosage: 240 MG, QD, ORAL
     Route: 048
     Dates: start: 20060101, end: 20090514
  2. PREDNISOLONE [Suspect]
     Indication: RHEUMATOID ARTHRITIS
     Dosage: 15 MG, QD, ORAL
     Route: 048
     Dates: start: 20060901
  3. DIGITOXIN INJ [Suspect]
     Indication: ATRIAL FIBRILLATION
     Dosage: 0.07 MG, ORAL
     Route: 048
     Dates: start: 20070901, end: 20090514
  4. AZITHROMYCIN [Suspect]
     Indication: BRONCHITIS
     Dosage: ORAL
     Route: 048
     Dates: start: 20090501, end: 20090511
  5. METHOTREXATE [Concomitant]
  6. DICLOFENAC RESINATE (DICLOFENAC RESINATE) [Concomitant]
  7. HYROSALURIC-K (HYROSALURIC-K(HYDROCHLORTHIAZIDE, POTASSIUM CHLORIDE)) [Concomitant]
  8. ASPIRIN [Concomitant]
  9. LEVOTHYROXINE SODIUM [Concomitant]
  10. ALENDRONATE SODIUM [Concomitant]
  11. BUDESONIDE W/ FORMOTEROL FUMARATE (FORMOTEROL FUMARATE, BUDESONIDE) [Concomitant]
  12. CALCIUM D3 (COLECALCIFEROL, CALCIUM) [Concomitant]
  13. AMBROXOL (AMBROXOL) [Concomitant]
  14. CLEXANE (CLEXANE) [Concomitant]

REACTIONS (7)
  - ATRIOVENTRICULAR BLOCK SECOND DEGREE [None]
  - BRADYCARDIA [None]
  - DRUG INTERACTION [None]
  - ELECTROCARDIOGRAM ST SEGMENT DEPRESSION [None]
  - PULMONARY EMBOLISM [None]
  - QRS AXIS ABNORMAL [None]
  - THERAPEUTIC AGENT TOXICITY [None]
